FAERS Safety Report 7186816-X (Version None)
Quarter: 2010Q4

REPORT INFORMATION
  Report Type: 
  Country: None (occurrence: None)
  Receive Date: 20101222
  Receipt Date: 20101216
  Transmission Date: 20110411
  Serious: Yes (Death, Hospitalization)
  Sender: FDA-Public Use
  Company Number: A0901032A

PATIENT
  Age: 26 Year
  Sex: Female
  Weight: 48 kg

DRUGS (3)
  1. FLOLAN [Suspect]
     Indication: PULMONARY ARTERIAL HYPERTENSION
     Route: 065
     Dates: start: 20100514
  2. LASIX [Concomitant]
  3. METOLAZONE [Concomitant]

REACTIONS (3)
  - CYANOSIS [None]
  - DRUG ADMINISTRATION ERROR [None]
  - SOMNOLENCE [None]
